FAERS Safety Report 7221464-4 (Version None)
Quarter: 2011Q1

REPORT INFORMATION
  Report Type: 
  Country: None (occurrence: None)
  Receive Date: 20110112
  Receipt Date: 20110110
  Transmission Date: 20110831
  Serious: Yes (Other)
  Sender: FDA-Public Use
  Company Number: ES-BAYER-2011-003017

PATIENT
  Age: 62 Year
  Sex: Female

DRUGS (2)
  1. ULTRAVIST 150 [Suspect]
     Dosage: 100 ML, UNK
     Route: 042
     Dates: start: 20101230, end: 20101230
  2. CHEMOTHERAPEUTICS NOS [Concomitant]

REACTIONS (4)
  - COUGH [None]
  - LARYNGEAL OEDEMA [None]
  - UPPER AIRWAY OBSTRUCTION [None]
  - DYSPNOEA [None]
